FAERS Safety Report 5167473-0 (Version None)
Quarter: 2006Q4

REPORT INFORMATION
  Report Type: 
  Country: None (occurrence: None)
  Receive Date: 20061130
  Receipt Date: 20061117
  Transmission Date: 20070319
  Serious: Yes (Other)
  Sender: FDA-Public Use
  Company Number: 15187

PATIENT
  Age: 31 Week
  Sex: Male
  Weight: 1.31 kg

DRUGS (3)
  1. DOPAMINE HCL [Suspect]
     Indication: HYPERTROPHIC CARDIOMYOPATHY
     Dosage: 2880 MCG/KG DAILY
  2. DOPAMINE HCL [Suspect]
     Indication: RESTRICTIVE CARDIOMYOPATHY
     Dosage: 2880 MCG/KG DAILY
  3. PROPRANOLOL [Concomitant]

REACTIONS (4)
  - CONGENITAL HYPOTHYROIDISM [None]
  - CONVULSION NEONATAL [None]
  - QUADRIPLEGIA [None]
  - RENAL FAILURE NEONATAL [None]
